FAERS Safety Report 7258440-1 (Version None)
Quarter: 2011Q1

REPORT INFORMATION
  Report Type: 
  Country: None (occurrence: None)
  Receive Date: 20110129
  Receipt Date: 20100819
  Transmission Date: 20110831
  Serious: No
  Sender: FDA-Public Use
  Company Number: US-ABBOTT-10P-163-0665015-00

PATIENT
  Age: 63 Year
  Sex: Female

DRUGS (2)
  1. HUMIRA [Suspect]
     Indication: RHEUMATOID ARTHRITIS
     Dates: start: 20100621
  2. UNKNOWN INHALER [Concomitant]
     Indication: ASTHMA

REACTIONS (4)
  - LIMB INJURY [None]
  - NASOPHARYNGITIS [None]
  - CONTUSION [None]
  - ASTHMA [None]
